FAERS Safety Report 9387978 (Version 1)
Quarter: 2013Q3

REPORT INFORMATION
  Report Type: Report from Study
  Country: CA (occurrence: CA)
  Receive Date: 20130708
  Receipt Date: 20130708
  Transmission Date: 20140515
  Serious: Yes (Death, Hospitalization, Other)
  Sender: FDA-Public Use
  Company Number: CA-009507513-1306CAN001430

PATIENT
  Age: 85 Year
  Sex: Male
  Weight: 79.37 kg

DRUGS (21)
  1. BLINDED EZETIMIBE (+) SIMVASTATIN [Suspect]
     Indication: ACUTE CORONARY SYNDROME
     Dosage: UNK
     Route: 048
     Dates: start: 20090121
  2. BLINDED PLACEBO [Suspect]
     Indication: ACUTE CORONARY SYNDROME
     Dosage: UNK
     Route: 048
     Dates: start: 20090121
  3. BLINDED POST TRIAL THERAPY [Suspect]
     Indication: ACUTE CORONARY SYNDROME
     Dosage: UNK
     Route: 048
     Dates: start: 20090121
  4. BLINDED PRE TRIAL THERAPY [Suspect]
     Indication: ACUTE CORONARY SYNDROME
     Dosage: UNK
     Route: 048
     Dates: start: 20090121
  5. BLINDED SIMVASTATIN [Suspect]
     Indication: ACUTE CORONARY SYNDROME
     Dosage: UNK
     Route: 048
     Dates: start: 20090121
  6. BLINDED THERAPY [Suspect]
     Indication: ACUTE CORONARY SYNDROME
     Dosage: UNK
     Route: 048
     Dates: start: 20090121
  7. ADVAIR [Concomitant]
     Dosage: 50/250 MCG
     Route: 048
     Dates: start: 20110901, end: 20130529
  8. TAMSULOSIN HYDROCHLORIDE [Concomitant]
     Dosage: 0.4 MG, QD
     Route: 048
     Dates: start: 20081201, end: 20130529
  9. ARICEPT [Concomitant]
     Dosage: 5 MG, QD
     Route: 048
     Dates: start: 20130419, end: 20130529
  10. WARFARIN [Concomitant]
     Dosage: 0.75 MG, UNK
     Route: 048
     Dates: start: 20130419, end: 20130529
  11. DIGOXIN [Concomitant]
     Dosage: UNK0.125 MG 6 DAYS/ WK
     Route: 048
     Dates: start: 20081201, end: 20130529
  12. DOCUSATE SODIUM [Concomitant]
     Dosage: 200 MG, QD
     Route: 048
     Dates: start: 20130419, end: 20130529
  13. ZYLOPRIM [Concomitant]
     Dosage: 300 MG, QD
     Route: 048
     Dates: start: 20120301, end: 20130529
  14. FUROSEMIDE [Concomitant]
     Dosage: 160 MG, QD
     Route: 048
     Dates: start: 20130419, end: 20130529
  15. FUROSEMIDE [Concomitant]
     Dosage: 60 MG, UNK
     Route: 048
     Dates: start: 20130301
  16. POTASSIUM CHLORIDE [Concomitant]
     Dosage: 1200 MG, QD
     Route: 048
     Dates: start: 20130419, end: 20130529
  17. ACYCLOVIR [Concomitant]
     Dosage: 800 MG, UNK
     Route: 048
     Dates: start: 20130210
  18. ATROVENT [Concomitant]
     Dosage: UNK, PRN
     Route: 055
  19. WARFARIN [Concomitant]
     Dosage: 1 MG, UNK
     Route: 048
     Dates: start: 20081201
  20. MIDODRINE HYDROCHLORIDE [Concomitant]
     Dosage: 7.5 MG, UNK
     Route: 048
     Dates: start: 20130210
  21. ALBUTEROL [Concomitant]
     Dosage: 2 DF, PRN
     Route: 055
     Dates: start: 20090901

REACTIONS (1)
  - Renal failure acute [Fatal]
